FAERS Safety Report 17967289 (Version 1)
Quarter: 2020Q3

REPORT INFORMATION
  Report Type: Spontaneous
  Country: GB (occurrence: VN)
  Receive Date: 20200701
  Receipt Date: 20200701
  Transmission Date: 20201103
  Serious: Yes (Other)
  Sender: FDA-Public Use
  Company Number: VN-ASTELLAS-2020US021808

PATIENT
  Sex: Male

DRUGS (1)
  1. TARCEVA [Suspect]
     Active Substance: ERLOTINIB HYDROCHLORIDE
     Indication: LUNG NEOPLASM MALIGNANT
     Dosage: UNK UNK, UNKNOWN FREQ.
     Route: 048

REACTIONS (7)
  - Metastases to bone [Unknown]
  - Pyrexia [Unknown]
  - Tuberculosis [Unknown]
  - Headache [Unknown]
  - Lung neoplasm [Unknown]
  - Drug resistance [Unknown]
  - Metastases to central nervous system [Unknown]
